FAERS Safety Report 17891560 (Version 2)
Quarter: 2020Q3

REPORT INFORMATION
  Report Type: Spontaneous
  Country: US (occurrence: US)
  Receive Date: 20200612
  Receipt Date: 20200730
  Transmission Date: 20201103
  Serious: Yes (Other)
  Sender: FDA-Public Use
  Company Number: US-BAUSCH-BL-2020-016981

PATIENT
  Sex: Female
  Weight: 71.73 kg

DRUGS (8)
  1. ATIVAN [Suspect]
     Active Substance: LORAZEPAM
     Indication: DEPRESSION
     Dosage: STARTED IN FEB OR MAR 2016
     Route: 065
     Dates: start: 2016
  2. LEXAPRO [Suspect]
     Active Substance: ESCITALOPRAM OXALATE
     Indication: ANXIETY
     Dosage: RESTARTED
     Route: 065
  3. LEXAPRO [Suspect]
     Active Substance: ESCITALOPRAM OXALATE
     Dosage: DECREASED
     Route: 065
  4. ATIVAN [Suspect]
     Active Substance: LORAZEPAM
     Indication: ANXIETY
     Dosage: RESTARTED
     Route: 065
  5. LEXAPRO [Suspect]
     Active Substance: ESCITALOPRAM OXALATE
     Indication: DEPRESSION
     Dosage: STARTED IN FEB OR MAR 2016
     Route: 065
     Dates: start: 2016
  6. ATIVAN [Suspect]
     Active Substance: LORAZEPAM
     Dosage: DECREASED
     Route: 065
  7. ATIVAN [Suspect]
     Active Substance: LORAZEPAM
     Dosage: USUAL DOSE (STOPPED 6 MONTHS AGO)
     Route: 065
     Dates: end: 2020
  8. LEXAPRO [Suspect]
     Active Substance: ESCITALOPRAM OXALATE
     Dosage: USUAL DOSE (STOPPED 6 MONTHS AGO)
     Route: 065
     Dates: end: 2020

REACTIONS (8)
  - Drug dependence [Not Recovered/Not Resolved]
  - Pain [Not Recovered/Not Resolved]
  - Mental disorder [Not Recovered/Not Resolved]
  - Headache [Not Recovered/Not Resolved]
  - Illness [Not Recovered/Not Resolved]
  - Ill-defined disorder [Not Recovered/Not Resolved]
  - Dizziness [Not Recovered/Not Resolved]
  - Vertigo [Not Recovered/Not Resolved]

NARRATIVE: CASE EVENT DATE: 2019
